FAERS Safety Report 6785728-0 (Version None)
Quarter: 2010Q2

REPORT INFORMATION
  Report Type: 
  Country: None (occurrence: None)
  Receive Date: 20100623
  Receipt Date: 20100616
  Transmission Date: 20101027
  Serious: Yes (Hospitalization)
  Sender: FDA-Public Use
  Company Number: PHHO2009ES13177

PATIENT
  Sex: Male
  Weight: 88 kg

DRUGS (5)
  1. AFINITOR [Suspect]
     Indication: METASTATIC RENAL CELL CARCINOMA
     Dosage: 10 MG / DAY
     Route: 048
     Dates: start: 20090610
  2. AVASTIN [Suspect]
     Indication: METASTATIC RENAL CELL CARCINOMA
     Dosage: 520 MG / DAY
     Route: 042
     Dates: start: 20090610, end: 20091106
  3. IBUPROFEN [Suspect]
     Indication: PAIN
     Route: 048
  4. LEVOFLOXACIN [Suspect]
  5. PARACETAMOL [Concomitant]
     Indication: PAIN

REACTIONS (12)
  - ANAEMIA [None]
  - CHEST PAIN [None]
  - CHRONIC OBSTRUCTIVE PULMONARY DISEASE [None]
  - DYSPNOEA [None]
  - HYPERTENSION [None]
  - OROPHARYNGEAL PAIN [None]
  - PRODUCTIVE COUGH [None]
  - RENAL FAILURE ACUTE [None]
  - RENAL IMPAIRMENT [None]
  - RESPIRATORY DISORDER [None]
  - RESPIRATORY TRACT INFECTION [None]
  - TUBULOINTERSTITIAL NEPHRITIS [None]
